FAERS Safety Report 4817050-3 (Version None)
Quarter: 2005Q4

REPORT INFORMATION
  Report Type: 
  Country: None (occurrence: None)
  Receive Date: 20051101
  Receipt Date: 20051024
  Transmission Date: 20060501
  Serious: Yes (Death)
  Sender: FDA-Public Use
  Company Number: GB-GLAXOSMITHKLINE-B0398803A

PATIENT
  Sex: Male

DRUGS (7)
  1. SALBUTAMOL [Suspect]
     Dosage: 100MCG PER DAY
     Route: 055
  2. BECLOMETHASONE DIPROPIONATE [Suspect]
     Dosage: 100MCG PER DAY
     Route: 055
  3. SALMETEROL [Suspect]
     Dosage: 25MG PER DAY
     Route: 055
  4. SPIRIVA [Suspect]
     Route: 055
  5. BENDROFLUAZIDE [Suspect]
     Dosage: 2.5MG PER DAY
     Route: 065
  6. CALCICHEW D3 [Suspect]
  7. DOTHIEPIN HYDROCHLORIDE [Suspect]
     Dosage: 25MG PER DAY

REACTIONS (3)
  - CHRONIC OBSTRUCTIVE PULMONARY DISEASE [None]
  - LOWER RESPIRATORY TRACT INFECTION [None]
  - PULMONARY TUBERCULOSIS [None]
